FAERS Safety Report 12170775 (Version 1)
Quarter: 2016Q1

REPORT INFORMATION
  Report Type: Spontaneous
  Country: GB (occurrence: GB)
  Receive Date: 20160311
  Receipt Date: 20160311
  Transmission Date: 20160526
  Serious: Yes (Disabling)
  Sender: FDA-Public Use
  Company Number: GB-FRESENIUS KABI-FK201601219

PATIENT
  Age: 81 Year
  Sex: Female

DRUGS (13)
  1. RIVAROXABAN [Concomitant]
     Active Substance: RIVAROXABAN
  2. BISOPROLOL [Concomitant]
     Active Substance: BISOPROLOL
  3. COLECALCIFEROL [Concomitant]
     Active Substance: CHOLECALCIFEROL
  4. LANSOPRAZOLE. [Concomitant]
     Active Substance: LANSOPRAZOLE
  5. PANCREASE HL [Concomitant]
     Active Substance: PANCRELIPASE
  6. METFORMIN [Concomitant]
     Active Substance: METFORMIN HYDROCHLORIDE
  7. PREDNISONE. [Concomitant]
     Active Substance: PREDNISONE
  8. RAMIPRIL. [Concomitant]
     Active Substance: RAMIPRIL
  9. GLICLAZIDE [Concomitant]
     Active Substance: GLICLAZIDE
  10. LEVOTHYROXINE. [Concomitant]
     Active Substance: LEVOTHYROXINE
  11. ZOLEDRONIC ACID (MANUFACTURER UNKNOWN) [Suspect]
     Active Substance: ZOLEDRONIC ACID
     Indication: PRODUCT USED FOR UNKNOWN INDICATION
     Route: 042
     Dates: start: 20150727, end: 20150727
  12. FUROSEMIDE. [Concomitant]
     Active Substance: FUROSEMIDE
  13. GENOTROPIN [Concomitant]
     Active Substance: SOMATROPIN

REACTIONS (9)
  - Blood glucose abnormal [Not Recovered/Not Resolved]
  - Malaise [Not Recovered/Not Resolved]
  - Somnolence [Unknown]
  - Influenza like illness [Not Recovered/Not Resolved]
  - Back pain [Unknown]
  - Diarrhoea [Not Recovered/Not Resolved]
  - Neck pain [Unknown]
  - Rash [Not Recovered/Not Resolved]
  - Musculoskeletal pain [Unknown]
